FAERS Safety Report 9226465 (Version 5)
Quarter: 2015Q1

REPORT INFORMATION
  Report Type: Spontaneous
  Country: US (occurrence: US)
  Receive Date: 20130411
  Receipt Date: 20150303
  Transmission Date: 20150721
  Serious: No
  Sender: FDA-Public Use
  Company Number: US-009507513-1304USA003903

PATIENT
  Sex: Male
  Weight: 83.45 kg

DRUGS (2)
  1. PROPECIA [Suspect]
     Active Substance: FINASTERIDE
     Dosage: 1 MG, UNK
     Route: 048
     Dates: start: 201003, end: 201205
  2. PROPECIA [Suspect]
     Active Substance: FINASTERIDE
     Indication: ANDROGENETIC ALOPECIA
     Dosage: 1 MG, QD
     Route: 048
     Dates: start: 200201, end: 200505

REACTIONS (20)
  - Anal fissure [Unknown]
  - Peripheral coldness [Unknown]
  - Vomiting [Unknown]
  - Pharyngeal disorder [Unknown]
  - Ear operation [Unknown]
  - Gastrooesophageal reflux disease [Unknown]
  - Tympanoplasty [Unknown]
  - Depression [Not Recovered/Not Resolved]
  - Bronchitis [Unknown]
  - Raynaud^s phenomenon [Unknown]
  - Gastrointestinal haemorrhage [Unknown]
  - Hypertension [Unknown]
  - Cognitive disorder [Not Recovered/Not Resolved]
  - Otitis externa [Unknown]
  - Erectile dysfunction [Unknown]
  - Anxiety [Not Recovered/Not Resolved]
  - Pharyngeal erythema [Unknown]
  - Sexual dysfunction [Not Recovered/Not Resolved]
  - Depression [Unknown]
  - Rash [Unknown]

NARRATIVE: CASE EVENT DATE: 200203
